FAERS Safety Report 9804983 (Version 1)
Quarter: 2014Q1

REPORT INFORMATION
  Report Type: Spontaneous
  Country: TW (occurrence: TW)
  Receive Date: 20140109
  Receipt Date: 20140109
  Transmission Date: 20141002
  Serious: Yes (Hospitalization)
  Sender: FDA-Public Use
  Company Number: TW-PFIZER INC-2014002911

PATIENT
  Age: 81 Year
  Sex: Male

DRUGS (1)
  1. SUTENT [Suspect]
     Indication: RENAL CELL CARCINOMA
     Dosage: 37.5 MG PER DAY, CYCLIC TWO WEEKS ON AND ONE WEEK OFF
     Route: 048
     Dates: start: 20130104

REACTIONS (2)
  - Azotaemia [Not Recovered/Not Resolved]
  - Somnolence [Not Recovered/Not Resolved]
